FAERS Safety Report 4335562-6 (Version None)
Quarter: 2004Q2

REPORT INFORMATION
  Report Type: 
  Country: None (occurrence: None)
  Receive Date: 20040406
  Receipt Date: 20040305
  Transmission Date: 20050107
  Serious: Yes (Death, Hospitalization)
  Sender: FDA-Public Use
  Company Number: 2004-06782

PATIENT
  Age: 57 Year
  Sex: Male
  Weight: 72.5755 kg

DRUGS (25)
  1. TENOFOVIR DF (TENOFOVIR DISOPROXIL FUMARATE) [Suspect]
     Indication: HIV INFECTION
     Dosage: 300 MG, ONCE A DAY, ORAL
     Route: 048
     Dates: start: 20030101
  2. ZIAGEN [Concomitant]
  3. KALETRA [Concomitant]
  4. EPIVIR [Concomitant]
  5. LIPITOR [Concomitant]
  6. CELEXA [Concomitant]
  7. PRINIVIL [Concomitant]
  8. TOPROL-XL [Concomitant]
  9. ACYCLOVIR [Concomitant]
  10. AMBIEN [Concomitant]
  11. ZYPREXA [Concomitant]
  12. NIASPAN [Concomitant]
  13. ACETYLSALICYLIC ACID SRT [Concomitant]
  14. COLACE (DOCUSATE SODIUM) [Concomitant]
  15. PROVENTIL [Concomitant]
  16. NITROSTAT [Concomitant]
  17. NEURONTIN [Concomitant]
  18. DIFLUCAN [Concomitant]
  19. PREDNISONE [Concomitant]
  20. ZITHROMAX [Concomitant]
  21. TESSALON PERLES (BENZONATATE) [Concomitant]
  22. FOLGARD 2.2 (FOLIC ACID) [Concomitant]
  23. VIAGRA [Concomitant]
  24. WELLBUTRIN SR [Concomitant]
  25. ALBUTEROL INHALER (SALBUTAMOL SULFATE) [Concomitant]

REACTIONS (32)
  - ACQUIRED IMMUNODEFICIENCY SYNDROME [None]
  - ANAEMIA [None]
  - ANURIA [None]
  - CARDIAC ENZYMES INCREASED [None]
  - CARDIO-RESPIRATORY ARREST [None]
  - CHEST DISCOMFORT [None]
  - COAGULOPATHY [None]
  - DIZZINESS [None]
  - DRUG INEFFECTIVE [None]
  - DYSPNOEA [None]
  - ELECTROCARDIOGRAM CHANGE [None]
  - ENCEPHALOPATHY [None]
  - FALL [None]
  - FATIGUE [None]
  - HAEMODIALYSIS [None]
  - HYPERKALAEMIA [None]
  - HYPOTENSION [None]
  - IMPAIRED GASTRIC EMPTYING [None]
  - INCREASED VISCOSITY OF BRONCHIAL SECRETION [None]
  - LOBAR PNEUMONIA [None]
  - MALAISE [None]
  - METABOLIC ACIDOSIS [None]
  - OXYGEN SATURATION DECREASED [None]
  - RENAL FAILURE ACUTE [None]
  - RESPIRATORY FAILURE [None]
  - SINUSITIS [None]
  - TACHYARRHYTHMIA [None]
  - THROMBOCYTOPENIA [None]
  - TONIC CLONIC MOVEMENTS [None]
  - UPPER RESPIRATORY TRACT INFECTION [None]
  - WHEEZING [None]
  - WOUND SECRETION [None]
